FAERS Safety Report 20050404 (Version 1)
Quarter: 2021Q4

REPORT INFORMATION
  Report Type: Spontaneous
  Country: None (occurrence: US)
  Receive Date: 20211109
  Receipt Date: 20211109
  Transmission Date: 20220303
  Serious: No
  Sender: FDA-Public Use
  Company Number: US-B.Braun Medical Inc.-2121659

PATIENT
  Age: 65 Year
  Sex: Female
  Weight: 49.9 kg

DRUGS (3)
  1. SODIUM CHLORIDE [Suspect]
     Active Substance: SODIUM CHLORIDE
  2. ATIVAN [Concomitant]
     Active Substance: LORAZEPAM
  3. ALBUTEROL [Concomitant]
     Active Substance: ALBUTEROL

REACTIONS (1)
  - Anaphylactic reaction [Recovered/Resolved]
